FAERS Safety Report 10097847 (Version 1)
Quarter: 2014Q2

REPORT INFORMATION
  Report Type: Spontaneous
  Country: US (occurrence: US)
  Receive Date: 20140423
  Receipt Date: 20140423
  Transmission Date: 20141212
  Serious: No
  Sender: FDA-Public Use
  Company Number: US-BIOGENIDEC-2014BI035586

PATIENT
  Age: 57 Year
  Sex: Female

DRUGS (8)
  1. TECFIDERA [Suspect]
     Indication: MULTIPLE SCLEROSIS
     Route: 048
     Dates: start: 20140317, end: 20140323
  2. TECFIDERA [Suspect]
     Indication: MULTIPLE SCLEROSIS
     Route: 048
     Dates: start: 20140324
  3. VESICARE [Concomitant]
  4. ZOLOFT [Concomitant]
  5. CLONAZEPAM [Concomitant]
  6. IMIPRAMINE [Concomitant]
  7. VIT D [Concomitant]
  8. VIT C [Concomitant]

REACTIONS (3)
  - Dizziness [Unknown]
  - Flushing [Unknown]
  - Nausea [Unknown]
